FAERS Safety Report 6584843-4 (Version None)
Quarter: 2010Q1

REPORT INFORMATION
  Report Type: 
  Country: None (occurrence: None)
  Receive Date: 20100217
  Receipt Date: 20100205
  Transmission Date: 20100710
  Serious: Yes (Hospitalization)
  Sender: FDA-Public Use
  Company Number: PHHY2010FR06651

PATIENT
  Sex: Male
  Weight: 75 kg

DRUGS (4)
  1. EXJADE [Suspect]
     Indication: IRON OVERLOAD
     Dosage: 20 TO 30 MG/KG/DAY
     Dates: start: 20051208
  2. EXJADE [Suspect]
     Dosage: 20 MG/KG/DAY
  3. EXJADE [Suspect]
     Dosage: 1500 MG, DAILY
     Dates: start: 20100101
  4. GYNDELTA [Suspect]
     Indication: PROPHYLAXIS URINARY TRACT INFECTION
     Dosage: 03 DF, DAILY

REACTIONS (5)
  - APLASIA PURE RED CELL [None]
  - BONE MARROW DISORDER [None]
  - NORMOCHROMIC NORMOCYTIC ANAEMIA [None]
  - PYREXIA [None]
  - RENAL IMPAIRMENT [None]
